FAERS Safety Report 18683896 (Version 1)
Quarter: 2020Q4

REPORT INFORMATION
  Report Type: Spontaneous
  Country: US (occurrence: US)
  Receive Date: 20201230
  Receipt Date: 20201230
  Transmission Date: 20210114
  Serious: Yes (Other)
  Sender: FDA-Public Use
  Company Number: US-009507513-2012USA012000

PATIENT
  Sex: Female

DRUGS (2)
  1. FOSAMAX [Suspect]
     Active Substance: ALENDRONATE SODIUM
     Indication: OSTEOPOROSIS
     Dosage: DOSAGE INFORMATION: NOT REPORTED; ^AS PRESCRIBED AND IN A FORESEEABLE MANNER^
     Route: 048
  2. ALENDRONATE SODIUM. [Suspect]
     Active Substance: ALENDRONATE SODIUM
     Indication: OSTEOPOROSIS
     Dosage: DOSAGE INFORMATION: NOT REPORTED; ^AS PRESCRIBED AND IN A FORESEEABLE MANNER^; REPORTED AS: ALENDRON
     Route: 048

REACTIONS (3)
  - Femur fracture [Unknown]
  - Osteonecrosis of jaw [Unknown]
  - Incorrect product administration duration [Unknown]
